FAERS Safety Report 20027708 (Version 1)
Quarter: 2021Q4

REPORT INFORMATION
  Report Type: Spontaneous
  Country: US (occurrence: None)
  Receive Date: 20211103
  Receipt Date: 20211103
  Transmission Date: 20220303
  Serious: Yes (Other)
  Sender: FDA-Public Use
  Company Number: US-ROCHE-2944557

PATIENT
  Age: 38 Year
  Sex: Female
  Weight: 72.640 kg

DRUGS (5)
  1. OCREVUS [Suspect]
     Active Substance: OCRELIZUMAB
     Indication: Primary progressive multiple sclerosis
     Dosage: NEXT DOSE OF OCRELIZUMAB ON 5/NOV/2021.
     Route: 065
  2. PFIZER-BIONTECH COVID-19 VACCINE [Suspect]
     Active Substance: TOZINAMERAN
     Indication: COVID-19
     Dosage: PFIZER ;ONGOING: NO
     Route: 065
     Dates: start: 20210128
  3. PFIZER-BIONTECH COVID-19 VACCINE [Suspect]
     Active Substance: TOZINAMERAN
     Dosage: PFIZER ;ONGOING: NO
     Route: 065
     Dates: start: 20210222
  4. JANSSEN COVID-19 VACCINE [Suspect]
     Active Substance: AD26.COV2.S
     Indication: COVID-19
     Dosage: JOHNSON AND JOHNSON ;ONGOING: NO
     Route: 065
     Dates: start: 20210610
  5. BENADRYL [Concomitant]
     Active Substance: DIPHENHYDRAMINE HYDROCHLORIDE

REACTIONS (5)
  - SARS-CoV-2 antibody test negative [Unknown]
  - Dysstasia [Not Recovered/Not Resolved]
  - Muscle spasms [Recovered/Resolved]
  - Discomfort [Unknown]
  - Multiple sclerosis [Not Recovered/Not Resolved]

NARRATIVE: CASE EVENT DATE: 20210501
